FAERS Safety Report 6182725-3 (Version None)
Quarter: 2009Q2

REPORT INFORMATION
  Report Type: 
  Country: None (occurrence: None)
  Receive Date: 20090507
  Receipt Date: 20090427
  Transmission Date: 20091009
  Serious: Yes (Hospitalization)
  Sender: FDA-Public Use
  Company Number: AU-BAXTER-2009BH004454

PATIENT
  Age: 8 Month
  Sex: Male
  Weight: 11 kg

DRUGS (2)
  1. ADVATE [Suspect]
     Indication: HAEMOPHILIA
     Route: 042
     Dates: start: 20070714
  2. ADVATE [Suspect]
     Route: 042
     Dates: start: 20080314

REACTIONS (1)
  - CENTRAL VENOUS CATHETERISATION [None]
